FAERS Safety Report 10063449 (Version 6)
Quarter: 2018Q4

REPORT INFORMATION
  Report Type: Spontaneous
  Country: US (occurrence: US)
  Receive Date: 20140407
  Receipt Date: 20181220
  Transmission Date: 20190204
  Serious: Yes (Other)
  Sender: FDA-Public Use
  Company Number: US-TEVA-473771USA

PATIENT
  Age: 28 Year
  Sex: Female
  Weight: 71.28 kg

DRUGS (1)
  1. PARAGARD T 380A [Suspect]
     Active Substance: COPPER
     Indication: CONTRACEPTION
     Route: 015
     Dates: start: 20121113, end: 20140401

REACTIONS (5)
  - Drug ineffective [Not Recovered/Not Resolved]
  - Maternal exposure during pregnancy [Unknown]
  - Pregnancy with contraceptive device [Not Recovered/Not Resolved]
  - Breast pain [Unknown]
  - Fatigue [Unknown]

NARRATIVE: CASE EVENT DATE: 20140401
